FAERS Safety Report 9980278 (Version 1)
Quarter: 2014Q1

REPORT INFORMATION
  Report Type: Report from Study
  Country: US (occurrence: US)
  Receive Date: 20140307
  Receipt Date: 20140307
  Transmission Date: 20141002
  Serious: No
  Sender: FDA-Public Use
  Company Number: US-ABBVIE-13P-163-1176800-00

PATIENT
  Sex: Female
  Weight: 70.37 kg

DRUGS (8)
  1. HUMIRA [Suspect]
     Indication: CROHN^S DISEASE
     Dates: start: 2010, end: 2010
  2. HUMIRA [Suspect]
     Indication: ANKYLOSING SPONDYLITIS
     Dosage: TWO WEEKS AFTER INITIAL DOSE
     Dates: start: 2010, end: 2010
  3. HUMIRA [Suspect]
     Dosage: FOUR WEEKS AFTER INITIAL DOSE
     Dates: start: 2010, end: 2011
  4. HUMIRA [Suspect]
     Dates: start: 2011
  5. ASACOL [Concomitant]
     Indication: CROHN^S DISEASE
  6. UNKNOWN MEDICATION [Concomitant]
     Indication: CONTRACEPTION
  7. PRENATAL VITAMINS [Concomitant]
     Indication: PRODUCT USED FOR UNKNOWN INDICATION
  8. TRAMADOL [Concomitant]
     Indication: PRODUCT USED FOR UNKNOWN INDICATION

REACTIONS (6)
  - Gastrointestinal inflammation [Unknown]
  - Gastroenteritis viral [Recovered/Resolved]
  - Back pain [Recovered/Resolved]
  - Alopecia [Recovered/Resolved]
  - Abdominal pain upper [Recovered/Resolved]
  - Diarrhoea [Recovered/Resolved]
